FAERS Safety Report 21794021 (Version 2)
Quarter: 2023Q1

REPORT INFORMATION
  Report Type: Spontaneous
  Country: JP (occurrence: None)
  Receive Date: 20221229
  Receipt Date: 20230323
  Transmission Date: 20230418
  Serious: Yes (Hospitalization, Other)
  Sender: FDA-Public Use
  Company Number: 2022A415995

PATIENT
  Age: 80 Year

DRUGS (2)
  1. DAPAGLIFLOZIN [Suspect]
     Active Substance: DAPAGLIFLOZIN
     Indication: Diabetes mellitus
     Dosage: DOSE UNKNOWN
     Route: 048
  2. DAPAGLIFLOZIN [Suspect]
     Active Substance: DAPAGLIFLOZIN
     Indication: Cardiac failure chronic
     Dosage: DOSE UNKNOWN
     Route: 048

REACTIONS (5)
  - Dehydration [Recovered/Resolved]
  - Acute kidney injury [Unknown]
  - Weight decreased [Unknown]
  - Brain oedema [Unknown]
  - Acidosis [Unknown]

NARRATIVE: CASE EVENT DATE: 20230101
